FAERS Safety Report 8041095-6 (Version None)
Quarter: 2012Q1

REPORT INFORMATION
  Report Type: 
  Country: None (occurrence: None)
  Receive Date: 20120109
  Receipt Date: 20111129
  Transmission Date: 20120608
  Serious: Yes (Hospitalization)
  Sender: FDA-Public Use
  Company Number: 2011SP022505

PATIENT
  Age: 59 Year
  Sex: Male
  Weight: 98.7481 kg

DRUGS (6)
  1. PEG-INTRON [Suspect]
     Indication: HEPATITIS C
     Dosage: ;QW;SC
     Route: 058
     Dates: start: 20081209, end: 20090714
  2. VICODIN [Concomitant]
  3. RIBAVIRIN [Suspect]
     Indication: HEPATITIS C
     Dosage: 600 MG;BID;PO
     Route: 048
     Dates: start: 20081209, end: 20090714
  4. BOCEPREVIR [Suspect]
     Indication: HEPATITIS C
     Dosage: 800 MG;TID;PO
     Route: 048
     Dates: start: 20090105, end: 20090714
  5. COLACE [Concomitant]
  6. TERAZOSIN HCL [Concomitant]

REACTIONS (1)
  - PULMONARY FIBROSIS [None]
